FAERS Safety Report 17375835 (Version 1)
Quarter: 2020Q1

REPORT INFORMATION
  Report Type: Other
  Country: PL (occurrence: PL)
  Receive Date: 20200206
  Receipt Date: 20200206
  Transmission Date: 20200409
  Serious: Yes (Other)
  Sender: FDA-Public Use
  Company Number: PL-AJANTA PHARMA USA INC.-2079882

PATIENT
  Age: 51 Year
  Sex: Female

DRUGS (6)
  1. DULOXETINE (ANDA 208706) [Suspect]
     Active Substance: DULOXETINE
  2. DAPAGLIFLOZIN. [Concomitant]
     Active Substance: DAPAGLIFLOZIN
  3. ALPHA LIPOIC ACID [Concomitant]
     Active Substance: .ALPHA.-LIPOIC ACID
  4. PROPAFENONE. [Suspect]
     Active Substance: PROPAFENONE
  5. METFORMIN HYDROCHLORIDE. [Concomitant]
     Active Substance: METFORMIN HYDROCHLORIDE
  6. NEBIVOLOL. [Concomitant]
     Active Substance: NEBIVOLOL

REACTIONS (2)
  - Drug interaction [Unknown]
  - Granulocytopenia [Unknown]
